FAERS Safety Report 9422458 (Version 2)
Quarter: 2013Q3

REPORT INFORMATION
  Report Type: Spontaneous
  Country: FR (occurrence: FR)
  Receive Date: 20130726
  Receipt Date: 20130806
  Transmission Date: 20140515
  Serious: Yes (Hospitalization, Other)
  Sender: FDA-Public Use
  Company Number: FR-JNJFOC-20130713107

PATIENT
  Age: 76 Year
  Sex: Male
  Weight: 111 kg

DRUGS (13)
  1. XARELTO [Suspect]
     Indication: CEREBROVASCULAR ACCIDENT PROPHYLAXIS
     Route: 048
     Dates: start: 20130426, end: 201306
  2. XARELTO [Suspect]
     Indication: ATRIAL FIBRILLATION
     Route: 048
     Dates: start: 20130426, end: 201306
  3. XARELTO [Suspect]
     Indication: TRANSIENT ISCHAEMIC ATTACK
     Route: 048
     Dates: start: 20130426, end: 201306
  4. KARDEGIC [Concomitant]
     Route: 065
  5. ATENOLOL [Concomitant]
     Route: 065
  6. LASILIX [Concomitant]
     Route: 065
  7. SKENAN [Concomitant]
     Route: 065
  8. SPECIAFOLDINE [Concomitant]
     Route: 065
  9. LYRICA [Concomitant]
     Route: 065
  10. LISINOPRIL [Concomitant]
     Route: 065
  11. CRESTOR [Concomitant]
     Route: 065
  12. ALLOPURINOL [Concomitant]
     Route: 065
  13. FORLAX [Concomitant]
     Route: 065

REACTIONS (2)
  - Pulmonary embolism [Recovering/Resolving]
  - Drug ineffective [Unknown]
